FAERS Safety Report 7058053-0 (Version None)
Quarter: 2010Q4

REPORT INFORMATION
  Report Type: 
  Country: None (occurrence: None)
  Receive Date: 20101021
  Receipt Date: 20101021
  Transmission Date: 20110411
  Serious: Yes (Hospitalization)
  Sender: FDA-Public Use
  Company Number: None

PATIENT
  Sex: Female
  Weight: 44.9 kg

DRUGS (2)
  1. SOLIRIS [Suspect]
     Indication: PROPHYLAXIS AGAINST TRANSPLANT REJECTION
     Dosage: 1200 MG ONCE IV; 900 MG ONCE IV
     Route: 042
     Dates: start: 20101018
  2. SOLIRIS [Suspect]
     Indication: PROPHYLAXIS AGAINST TRANSPLANT REJECTION
     Dosage: 1200 MG ONCE IV; 900 MG ONCE IV
     Route: 042
     Dates: start: 20101019

REACTIONS (3)
  - ABDOMINAL PAIN [None]
  - ERUCTATION [None]
  - GASTROINTESTINAL MOTILITY DISORDER [None]
